FAERS Safety Report 4263858-5 (Version None)
Quarter: 2004Q1

REPORT INFORMATION
  Report Type: 
  Country: None (occurrence: None)
  Receive Date: 20040106
  Receipt Date: 20031120
  Transmission Date: 20041129
  Serious: Yes (Hospitalization)
  Sender: FDA-Public Use
  Company Number: PHNU2003DE04106

PATIENT
  Sex: Male
  Weight: 86 kg

DRUGS (8)
  1. CLOZARIL [Suspect]
     Indication: SCHIZOTYPAL PERSONALITY DISORDER
     Dosage: 12.5MG/DAY
     Route: 048
     Dates: start: 20030807, end: 20030808
  2. CLOZARIL [Suspect]
     Dosage: 25MG/DAY
     Route: 048
     Dates: start: 20030809, end: 20030813
  3. CLOZARIL [Suspect]
     Dosage: 37.5MG/DAY
     Route: 048
     Dates: start: 20030814, end: 20030824
  4. CLOZARIL [Suspect]
     Dosage: 50MG/DAY
     Route: 048
     Dates: start: 20030825, end: 20030904
  5. CLOZARIL [Suspect]
     Dosage: 62.5MG/DAY
     Route: 048
     Dates: start: 20030905, end: 20030908
  6. CLOZARIL [Suspect]
     Dosage: 50MG/DAY
     Route: 048
     Dates: start: 20030909, end: 20030910
  7. CLOZARIL [Suspect]
     Dosage: 25MG/DAY
     Route: 048
     Dates: start: 20030911, end: 20030912
  8. CLOZARIL [Suspect]
     Dosage: 75MG/DAY
     Route: 048
     Dates: start: 20020101, end: 20020101

REACTIONS (4)
  - ANTICHOLINERGIC SYNDROME [None]
  - BLOOD CHOLESTEROL INCREASED [None]
  - ELECTROENCEPHALOGRAM ABNORMAL [None]
  - HYPERTRIGLYCERIDAEMIA [None]
